FAERS Safety Report 24264719 (Version 1)
Quarter: 2024Q3

REPORT INFORMATION
  Report Type: Spontaneous
  Country: US (occurrence: US)
  Receive Date: 20240829
  Receipt Date: 20240829
  Transmission Date: 20241016
  Serious: No
  Sender: ABBVIE
  Company Number: US-ABBVIE-5898011

PATIENT

DRUGS (2)
  1. VRAYLAR [Suspect]
     Active Substance: CARIPRAZINE
     Indication: Adjuvant therapy
     Dosage: 3 MILLIGRAM
     Route: 048
     Dates: start: 2024, end: 2024
  2. VRAYLAR [Suspect]
     Active Substance: CARIPRAZINE
     Indication: Adjuvant therapy
     Route: 048
     Dates: start: 2024, end: 2024

REACTIONS (1)
  - Vision blurred [Not Recovered/Not Resolved]
